FAERS Safety Report 6247831-3 (Version None)
Quarter: 2009Q2

REPORT INFORMATION
  Report Type: 
  Country: None (occurrence: None)
  Receive Date: 20090626
  Receipt Date: 20090526
  Transmission Date: 20091009
  Serious: No
  Sender: FDA-Public Use
  Company Number: US-BAYER-200921834NA

PATIENT
  Age: 67 Year
  Sex: Male

DRUGS (9)
  1. LEVITRA [Suspect]
     Indication: ERECTILE DYSFUNCTION
     Dosage: AS USED: 5 MG  UNIT DOSE: 10 MG
     Dates: start: 20090519
  2. LEVITRA [Suspect]
     Dosage: AS USED: 20 MG  UNIT DOSE: 10 MG
     Dates: start: 20090521
  3. LEVITRA [Suspect]
     Dosage: AS USED: 10 MG  UNIT DOSE: 10 MG
     Dates: start: 20090525
  4. LEVITRA [Suspect]
     Dosage: AS USED: 10 MG  UNIT DOSE: 10 MG
     Dates: start: 20090520
  5. LEVITRA [Suspect]
     Dosage: AS USED: 5 MG  UNIT DOSE: 10 MG
     Dates: start: 20090519
  6. HUMALOG [Concomitant]
  7. GLYBURIDE [Concomitant]
  8. METFORMIN [Concomitant]
  9. ATENOLOL [Concomitant]

REACTIONS (1)
  - ADVERSE EVENT [None]
